FAERS Safety Report 8153720-X (Version None)
Quarter: 2012Q1

REPORT INFORMATION
  Report Type: 
  Country: None (occurrence: None)
  Receive Date: 20120221
  Receipt Date: 20120216
  Transmission Date: 20120608
  Serious: Yes (Disabling)
  Sender: FDA-Public Use
  Company Number: US-PFIZER INC-2012042938

PATIENT
  Sex: Male

DRUGS (1)
  1. VISTARIL [Suspect]
     Dosage: 50 MG, 2X/DAY
     Route: 048

REACTIONS (1)
  - MENTAL DISORDER [None]
